FAERS Safety Report 19657893 (Version 3)
Quarter: 2022Q2

REPORT INFORMATION
  Report Type: Spontaneous
  Country: US (occurrence: US)
  Receive Date: 20210804
  Receipt Date: 20220620
  Transmission Date: 20220721
  Serious: No
  Sender: FDA-Public Use
  Company Number: US-009507513-2107USA004809

PATIENT
  Sex: Female

DRUGS (6)
  1. PROVENTIL [Suspect]
     Active Substance: ALBUTEROL
     Dosage: 1 PUFF AS NEEDED
     Dates: start: 20210211, end: 20210218
  2. PROVENTIL [Suspect]
     Active Substance: ALBUTEROL
     Dosage: 1 DOSE AS NEEDED
     Dates: start: 202104, end: 2021
  3. PROVENTIL [Suspect]
     Active Substance: ALBUTEROL
     Dosage: 1 PUFF AS NEEDED
     Dates: start: 20210711, end: 20210711
  4. PROVENTIL [Suspect]
     Active Substance: ALBUTEROL
     Dosage: UNK
  5. PROVENTIL [Suspect]
     Active Substance: ALBUTEROL
     Dosage: UNK
  6. PROVENTIL [Suspect]
     Active Substance: ALBUTEROL
     Dosage: UNK

REACTIONS (11)
  - Device defective [Unknown]
  - Poor quality device used [Unknown]
  - Product delivery mechanism issue [Unknown]
  - Poor quality device used [Unknown]
  - Product delivery mechanism issue [Unknown]
  - Poor quality device used [Unknown]
  - Product delivery mechanism issue [Unknown]
  - Product use issue [Unknown]
  - Product packaging quantity issue [Unknown]
  - Device malfunction [Unknown]
  - No adverse event [Unknown]

NARRATIVE: CASE EVENT DATE: 20210101
